FAERS Safety Report 12421170 (Version 1)
Quarter: 2016Q2

REPORT INFORMATION
  Report Type: Spontaneous
  Country: JP (occurrence: JP)
  Receive Date: 20160531
  Receipt Date: 20160531
  Transmission Date: 20160815
  Serious: Yes (Other)
  Sender: FDA-Public Use
  Company Number: JP-ELI_LILLY_AND_COMPANY-JP201605003511

PATIENT
  Age: 73 Year
  Sex: Male

DRUGS (5)
  1. ZALUTIA [Suspect]
     Active Substance: TADALAFIL
     Indication: POLLAKIURIA
     Dosage: 2.5 MG, QD
     Route: 048
     Dates: start: 20160502, end: 20160509
  2. URIEF [Concomitant]
     Active Substance: SILODOSIN
     Indication: POLLAKIURIA
     Dosage: UNK
     Route: 048
  3. BETANIS [Suspect]
     Active Substance: MIRABEGRON
     Dosage: UNK
     Route: 065
     Dates: start: 20160502, end: 20160510
  4. BETANIS [Suspect]
     Active Substance: MIRABEGRON
     Indication: POLLAKIURIA
     Dosage: UNK
     Route: 048
     Dates: end: 20160501
  5. AVOLVE [Concomitant]
     Active Substance: DUTASTERIDE
     Dosage: UNK
     Route: 048
     Dates: start: 20160510

REACTIONS (7)
  - Altered state of consciousness [Unknown]
  - Sepsis [Unknown]
  - Pyrexia [Unknown]
  - Urinary retention [Unknown]
  - Urinary tract infection [Unknown]
  - Ileus [Unknown]
  - Renal impairment [Unknown]

NARRATIVE: CASE EVENT DATE: 20160509
